FAERS Safety Report 21447833 (Version 1)
Quarter: 2022Q4

REPORT INFORMATION
  Report Type: Spontaneous
  Country: IE (occurrence: IE)
  Receive Date: 20221012
  Receipt Date: 20221012
  Transmission Date: 20230113
  Serious: Yes (Disabling, Other)
  Sender: FDA-Public Use
  Company Number: None

PATIENT
  Age: 87 Year
  Sex: Female
  Weight: 73 kg

DRUGS (3)
  1. NEBIVOLOL [Suspect]
     Active Substance: NEBIVOLOL
     Indication: Ventricular extrasystoles
     Dosage: RECOMMENDED THAT SHE RESTART THE NEBIVOLOL 1.25MG AS THEY FELT SHE WAS OVERALL BETTER OFF ON IT. , U
     Dates: start: 202205
  2. NEBIVOLOL [Suspect]
     Active Substance: NEBIVOLOL
     Dates: end: 20220408
  3. SPIKEVAX [Suspect]
     Active Substance: ELASOMERAN
     Indication: COVID-19 immunisation
     Dosage: SECOND BOOSTER DOSE  , UNIT DOSE : 0.25 ML , THERAPY END DATE : NASK
     Dates: start: 20220621

REACTIONS (1)
  - Atrial fibrillation [Not Recovered/Not Resolved]

NARRATIVE: CASE EVENT DATE: 20220623
